FAERS Safety Report 4824745-4 (Version None)
Quarter: 2005Q4

REPORT INFORMATION
  Report Type: 
  Country: None (occurrence: None)
  Receive Date: 20051110
  Receipt Date: 20051010
  Transmission Date: 20060501
  Serious: Yes (Life-Threatening)
  Sender: FDA-Public Use
  Company Number: 2005AP05750

PATIENT
  Age: 26290 Day
  Sex: Male
  Weight: 118 kg

DRUGS (3)
  1. DIPRIVAN [Suspect]
     Indication: GENERAL ANAESTHESIA
     Route: 042
     Dates: start: 20050706, end: 20050706
  2. MIDAZOLAM [Suspect]
     Indication: GENERAL ANAESTHESIA
     Dates: start: 20050706, end: 20050706
  3. ROCURONIUM BROMIDE [Suspect]
     Indication: GENERAL ANAESTHESIA
     Dates: start: 20050706, end: 20050706

REACTIONS (5)
  - CARDIAC ARREST [None]
  - FLUSHING [None]
  - HYPOTENSION [None]
  - VENTRICULAR FIBRILLATION [None]
  - VENTRICULAR TACHYCARDIA [None]
